FAERS Safety Report 24526913 (Version 1)
Quarter: 2024Q4

REPORT INFORMATION
  Report Type: Spontaneous
  Country: CZ (occurrence: CZ)
  Receive Date: 20241021
  Receipt Date: 20241021
  Transmission Date: 20250114
  Serious: Yes (Other)
  Sender: ROCHE
  Company Number: CZ-ROCHE-10000107012

PATIENT
  Sex: Female

DRUGS (1)
  1. ZELBORAF [Suspect]
     Active Substance: VEMURAFENIB
     Indication: Plasma cell myeloma
     Route: 065

REACTIONS (3)
  - Erythema [Unknown]
  - Toxic epidermal necrolysis [Unknown]
  - Embolism [Unknown]

NARRATIVE: CASE EVENT DATE: 20180330
